FAERS Safety Report 7391097-8 (Version None)
Quarter: 2011Q1

REPORT INFORMATION
  Report Type: 
  Country: None (occurrence: None)
  Receive Date: 20110324
  Receipt Date: 20100308
  Transmission Date: 20110831
  Serious: Yes (Death, Hospitalization)
  Sender: FDA-Public Use
  Company Number: FK201100444

PATIENT
  Age: 80 Year
  Sex: Female

DRUGS (7)
  1. DIGOXIN [Concomitant]
  2. METOPROLOL SUCCINATE [Concomitant]
  3. LISINOPRIL [Concomitant]
  4. PARACETAMOL (PARACETAMOL) (PARACETAMOL) [Concomitant]
  5. METHOTREXATE [Suspect]
     Indication: RHEUMATOID ARTHRITIS
  6. NAPROXEN SODIUM [Suspect]
     Indication: RHEUMATOID ARTHRITIS
  7. FUROSEMIDE [Concomitant]

REACTIONS (5)
  - HAEMORRHAGE [None]
  - WEIGHT INCREASED [None]
  - DRUG INTERACTION [None]
  - RENAL IMPAIRMENT [None]
  - OEDEMA [None]
